FAERS Safety Report 9516727 (Version 1)
Quarter: 2013Q3

REPORT INFORMATION
  Report Type: Spontaneous
  Country: US (occurrence: None)
  Receive Date: 20130910
  Receipt Date: 20130910
  Transmission Date: 20140515
  Serious: Yes (Other)
  Sender: FDA-Public Use
  Company Number: None

PATIENT
  Age: 60 Year
  Sex: Female
  Weight: 89.81 kg

DRUGS (4)
  1. FERROUS SULFATE [Suspect]
     Route: 048
     Dates: start: 2010
  2. LISINOPRIL [Concomitant]
  3. MULTIVITAMIN [Concomitant]
  4. FISH OIL [Concomitant]

REACTIONS (4)
  - Abdominal pain upper [None]
  - Dyspepsia [None]
  - Nausea [None]
  - Product quality issue [None]
